FAERS Safety Report 8245044-7 (Version None)
Quarter: 2012Q1

REPORT INFORMATION
  Report Type: 
  Country: None (occurrence: None)
  Receive Date: 20120329
  Receipt Date: 20120322
  Transmission Date: 20120608
  Serious: Yes (Death, Hospitalization)
  Sender: FDA-Public Use
  Company Number: US-GLAXOSMITHKLINE-A0849314A

PATIENT
  Sex: Male

DRUGS (6)
  1. ALLOPURINOL [Concomitant]
  2. THYROID MEDICATION [Concomitant]
  3. SIMVASTATIN [Concomitant]
  4. EPOETIN ALFA [Concomitant]
  5. AVANDIA [Suspect]
     Indication: DIABETES MELLITUS
     Dosage: 4MG PER DAY
     Route: 048
     Dates: start: 20000330, end: 20070511
  6. LOPID [Concomitant]

REACTIONS (7)
  - ASTHENIA [None]
  - PANCYTOPENIA [None]
  - DEATH [None]
  - CARDIAC FAILURE CONGESTIVE [None]
  - RENAL FAILURE CHRONIC [None]
  - BACTERAEMIA [None]
  - UPPER LIMB FRACTURE [None]
